FAERS Safety Report 6471567-7 (Version None)
Quarter: 2009Q4

REPORT INFORMATION
  Report Type: 
  Country: None (occurrence: None)
  Receive Date: 20091203
  Receipt Date: 20091123
  Transmission Date: 20100525
  Serious: Yes (Other)
  Sender: FDA-Public Use
  Company Number: GB-TEVA-216295ISR

PATIENT
  Age: 60 Year
  Sex: Female

DRUGS (1)
  1. LEVOTHYROXINE SODIUM [Suspect]
     Route: 048

REACTIONS (5)
  - BLINDNESS TRANSIENT [None]
  - FACIAL PAIN [None]
  - PHOTOPSIA [None]
  - VISUAL BRIGHTNESS [None]
  - VISUAL IMPAIRMENT [None]
